FAERS Safety Report 7659786-5 (Version None)
Quarter: 2011Q3

REPORT INFORMATION
  Report Type: 
  Country: None (occurrence: None)
  Receive Date: 20110805
  Receipt Date: 20110113
  Transmission Date: 20111222
  Serious: No
  Sender: FDA-Public Use
  Company Number: US-ABBOTT-11P-163-0697926-00

PATIENT
  Sex: Female
  Weight: 122.58 kg

DRUGS (6)
  1. LEVOTHYROXINE SODIUM [Concomitant]
     Indication: AUTOIMMUNE THYROIDITIS
     Dates: start: 19900101
  2. DIAZEPAM [Concomitant]
     Indication: PRODUCT USED FOR UNKNOWN INDICATION
  3. EFFEXOR [Concomitant]
     Indication: MANIA
     Dates: start: 19900101
  4. TOPROL ER [Concomitant]
     Indication: BLOOD PRESSURE
     Dates: start: 20030101
  5. DEPAKOTE ER [Suspect]
     Indication: MANIA
  6. ZYRTEC [Concomitant]
     Indication: HYPERSENSITIVITY

REACTIONS (1)
  - RASH [None]
